FAERS Safety Report 6166328-2 (Version None)
Quarter: 2009Q2

REPORT INFORMATION
  Report Type: 
  Country: None (occurrence: None)
  Receive Date: 20090424
  Receipt Date: 20071115
  Transmission Date: 20091009
  Serious: No
  Sender: FDA-Public Use
  Company Number: US-BAYER-200713810BCC

PATIENT
  Age: 35 Year
  Sex: Female
  Weight: 84 kg

DRUGS (2)
  1. RID MOUSSE [Suspect]
     Indication: LICE INFESTATION
     Route: 061
     Dates: start: 20071017, end: 20071017
  2. RID MOUSSE [Suspect]
     Route: 061
     Dates: start: 20071026, end: 20071026

REACTIONS (1)
  - PRURITUS [None]
